FAERS Safety Report 5630352-6 (Version None)
Quarter: 2008Q1

REPORT INFORMATION
  Report Type: 
  Country: None (occurrence: None)
  Receive Date: 20080219
  Receipt Date: 20080210
  Transmission Date: 20080703
  Serious: Yes (Other)
  Sender: FDA-Public Use
  Company Number: PHEH2008US01738

PATIENT
  Sex: Female

DRUGS (2)
  1. VOLTAREN [Suspect]
  2. VOLTAREN-XR [Suspect]

REACTIONS (7)
  - ALOPECIA [None]
  - COLITIS ISCHAEMIC [None]
  - HAEMATOCHEZIA [None]
  - HAEMORRHAGE [None]
  - RECTAL PROLAPSE [None]
  - RECTAL PROLAPSE REPAIR [None]
  - VOMITING [None]
